FAERS Safety Report 13057391 (Version 2)
Quarter: 2017Q3

REPORT INFORMATION
  Report Type: Spontaneous
  Country: CA (occurrence: CA)
  Receive Date: 20161223
  Receipt Date: 20170831
  Transmission Date: 20171127
  Serious: Yes (Other)
  Sender: FDA-Public Use
  Company Number: CA-ORION CORPORATION ORION PHARMA-TREX2016-2682

PATIENT
  Age: 66 Year
  Sex: Female

DRUGS (5)
  1. DEMEROL [Suspect]
     Active Substance: MEPERIDINE HYDROCHLORIDE
     Route: 065
  2. SIMPONI [Concomitant]
     Active Substance: GOLIMUMAB
     Route: 065
  3. ENBREL [Suspect]
     Active Substance: ETANERCEPT
     Route: 065
  4. METHOTREXATE (TRADE NAME UNKNOWN) [Suspect]
     Active Substance: METHOTREXATE
     Route: 065
  5. PENICILLIN [Suspect]
     Active Substance: PENICILLIN
     Route: 065

REACTIONS (8)
  - Hand deformity [Unknown]
  - Hallucination [Unknown]
  - Drug ineffective [Unknown]
  - Joint ankylosis [Unknown]
  - Arthralgia [Unknown]
  - Hip arthroplasty [Unknown]
  - Foot deformity [Unknown]
  - Malaise [Unknown]
